FAERS Safety Report 5198094-1 (Version None)
Quarter: 2006Q4

REPORT INFORMATION
  Report Type: 
  Country: None (occurrence: None)
  Receive Date: 20061228
  Receipt Date: 20061215
  Transmission Date: 20070319
  Serious: Yes (Hospitalization)
  Sender: FDA-Public Use
  Company Number: B0423282A

PATIENT
  Age: 80 Year
  Sex: Female

DRUGS (1)
  1. PAROXETINE HCL [Suspect]
     Indication: MAJOR DEPRESSION
     Dosage: 25 MG / PER DAY / UNKNOWN

REACTIONS (7)
  - AGITATION [None]
  - CONFUSIONAL STATE [None]
  - DISORIENTATION [None]
  - MENTAL STATUS CHANGES [None]
  - RENAL FAILURE ACUTE [None]
  - RHABDOMYOLYSIS [None]
  - SEROTONIN SYNDROME [None]
